FAERS Safety Report 8129883-9 (Version None)
Quarter: 2012Q1

REPORT INFORMATION
  Report Type: 
  Country: None (occurrence: None)
  Receive Date: 20120210
  Receipt Date: 20120201
  Transmission Date: 20120608
  Serious: Yes (Other)
  Sender: FDA-Public Use
  Company Number: US-CELGENEUS-163-21880-11102978

PATIENT
  Sex: Male
  Weight: 85.73 kg

DRUGS (11)
  1. CYMBALTA [Concomitant]
     Dosage: 1
     Route: 048
  2. LISINOPRIL [Concomitant]
     Dosage: 1
     Route: 048
  3. FUROSEMIDE [Concomitant]
     Dosage: 1
     Route: 048
  4. HUMALOG [Concomitant]
     Dosage: 100 UNIT/ML
     Route: 058
  5. REVLIMID [Suspect]
     Indication: MULTIPLE MYELOMA
     Dosage: 10 MILLIGRAM
     Route: 048
     Dates: start: 20110923, end: 20111024
  6. ASPIRIN [Concomitant]
     Indication: CORONARY ARTERY DISEASE
     Dosage: 1
     Route: 048
  7. CALCIUM ACETATE [Concomitant]
     Dosage: 1
     Route: 048
  8. LEVEMIR [Concomitant]
     Dosage: 100 UNIT/ML  85 UNIT
     Route: 058
  9. CALCITRIOL [Concomitant]
     Dosage: 1
     Route: 048
  10. DEXAMETHASONE [Concomitant]
     Indication: MULTIPLE MYELOMA
     Dosage: 10 TABLET
     Route: 048
  11. METOLAZONE [Concomitant]
     Dosage: 0.5
     Route: 048

REACTIONS (9)
  - EPISTAXIS [None]
  - ABDOMINAL PAIN UPPER [None]
  - HAEMOPTYSIS [None]
  - DRUG INTOLERANCE [None]
  - FATIGUE [None]
  - NAUSEA [None]
  - MALAISE [None]
  - DIZZINESS [None]
  - HEADACHE [None]
